FAERS Safety Report 16836254 (Version 5)
Quarter: 2020Q1

REPORT INFORMATION
  Report Type: Report from Study
  Country: IT (occurrence: IT)
  Receive Date: 20190921
  Receipt Date: 20200113
  Transmission Date: 20200409
  Serious: Yes (Hospitalization)
  Sender: FDA-Public Use
  Company Number: IT-ACCORD-155385

PATIENT
  Age: 63 Year
  Sex: Male

DRUGS (14)
  1. RAMIPRIL. [Suspect]
     Active Substance: RAMIPRIL
     Indication: HYPERTENSION
     Dosage: 5 MG, QD
     Route: 048
  2. LUVION (CANRENONE) [Interacting]
     Active Substance: CANRENONE
     Indication: HYPERTENSION
     Route: 048
  3. ACETYLSALICYLIC ACID [Concomitant]
     Active Substance: ASPIRIN
     Route: 048
  4. BRILIQUE [Concomitant]
     Active Substance: TICAGRELOR
     Dosage: STRENGTH: 60 MG
  5. CANRENONE [Interacting]
     Active Substance: CANRENONE
     Indication: HYPERTENSION
     Dosage: 1 DF, QD
     Route: 048
  6. METFORMIN [Concomitant]
     Active Substance: METFORMIN HYDROCHLORIDE
  7. CORTISONE [Concomitant]
     Active Substance: CORTISONE
     Dosage: STRENGTH: 25 MG, 20 TABLETS
  8. OLEVIA [Concomitant]
     Active Substance: OMEGA-3-ACID ETHYL ESTERS
     Dosage: STRENGTH: 1000 MG
  9. LUVION (CANRENONE) [Interacting]
     Active Substance: CANRENONE
     Indication: HYPERTENSION
     Dosage: 1 DF, QD
     Route: 048
  10. TESTOVIRON [Concomitant]
     Active Substance: TESTOSTERONE
     Dosage: STRENGTH: 250 MG/ML, PROLONGED RELEASE SOLUTION FOR INJECTION
  11. BISOPROLOL [Concomitant]
     Active Substance: BISOPROLOL
  12. ATORVASTATIN [Concomitant]
     Active Substance: ATORVASTATIN
  13. EUTIROX [Concomitant]
     Active Substance: LEVOTHYROXINE SODIUM
     Dosage: STRENGTH: 125 MICROGRAMS
  14. MINIRIN/DDAVP [Suspect]
     Active Substance: DESMOPRESSIN ACETATE
     Indication: DIABETES MELLITUS
     Dosage: STRENGTH: 120 MCG
     Route: 048

REACTIONS (5)
  - Drug interaction [Unknown]
  - Bradyphrenia [Recovering/Resolving]
  - Hyperkalaemia [Recovering/Resolving]
  - Hypokinesia [Recovering/Resolving]
  - Hyponatraemia [Recovering/Resolving]

NARRATIVE: CASE EVENT DATE: 20190801
